FAERS Safety Report 7250131-6 (Version None)
Quarter: 2011Q1

REPORT INFORMATION
  Report Type: 
  Country: None (occurrence: None)
  Receive Date: 20110128
  Receipt Date: 20110103
  Transmission Date: 20110831
  Serious: Yes (Death)
  Sender: FDA-Public Use
  Company Number: US-BAYER-2011-000790

PATIENT
  Age: 63 Year
  Sex: Male

DRUGS (3)
  1. PARACETAMOL + DIPHENHYDRAMINE [Suspect]
     Route: 048
  2. NAPROXEN SODIUM [Suspect]
     Route: 048
  3. PROPAFENONE [Suspect]
     Route: 048

REACTIONS (1)
  - TOXICITY TO VARIOUS AGENTS [None]
